FAERS Safety Report 8787044 (Version 1)
Quarter: 2012Q4

REPORT INFORMATION
  Report Type: 
  Country: JP (occurrence: JP)
  Receive Date: 20120914
  Receipt Date: 20120914
  Transmission Date: 20130627
  Serious: Yes (Other)
  Sender: FDA-Public Use
  Company Number: JP-ASTELLAS-2012JP008487

PATIENT
  Age: 57 Year
  Sex: Male

DRUGS (9)
  1. PROGRAF [Suspect]
     Indication: RHEUMATOID ARTHRITIS
     Dosage: UNK
     Route: 065
  2. METHOTREXATE [Concomitant]
     Indication: RHEUMATOID ARTHRITIS
     Dosage: 4 mg, Weekly
     Route: 065
  3. METHOTREXATE [Concomitant]
     Dosage: UNK
     Route: 065
  4. PREDONINE /00016201/ [Concomitant]
     Indication: RHEUMATOID ARTHRITIS
     Dosage: 5 mg, Unknown/D
     Route: 065
  5. D-PENICILLAMINE [Concomitant]
     Indication: RHEUMATOID ARTHRITIS
     Dosage: UNK
     Route: 065
  6. BUCILLAMINE [Concomitant]
     Indication: RHEUMATOID ARTHRITIS
     Dosage: UNK
     Route: 065
  7. INFLIXIMAB [Concomitant]
     Indication: RHEUMATOID ARTHRITIS
     Dosage: UNK
     Route: 065
     Dates: start: 2006
  8. INFLIXIMAB [Concomitant]
     Dosage: UNK
     Route: 065
     Dates: start: 200908
  9. ETANERCEPT [Concomitant]
     Indication: RHEUMATOID ARTHRITIS
     Dosage: 50 mg, Weekly
     Route: 065
     Dates: start: 200606

REACTIONS (3)
  - Drug ineffective [Unknown]
  - Intentional drug misuse [Unknown]
  - Rheumatoid arthritis [Unknown]
